FAERS Safety Report 13577813 (Version 2)
Quarter: 2017Q2

REPORT INFORMATION
  Report Type: Spontaneous
  Country: CH (occurrence: CH)
  Receive Date: 20170524
  Receipt Date: 20170615
  Transmission Date: 20170830
  Serious: Yes (Other)
  Sender: FDA-Public Use
  Company Number: CH-ALLERGAN-1721293US

PATIENT
  Age: 18 Year
  Sex: Male

DRUGS (3)
  1. ESCITALOPRAM OXALATE - BP [Suspect]
     Active Substance: ESCITALOPRAM OXALATE
     Indication: PRODUCT USED FOR UNKNOWN INDICATION
     Dosage: UNK, QD
     Route: 048
     Dates: start: 20170502
  2. AZITHROMYCIN MEPHA [Suspect]
     Active Substance: AZITHROMYCIN ANHYDROUS
     Indication: PNEUMONIA
  3. AZITHROMYCIN MEPHA [Suspect]
     Active Substance: AZITHROMYCIN ANHYDROUS
     Indication: GASTROENTERITIS
     Dosage: 500 MG, Q12H
     Route: 041

REACTIONS (5)
  - Neck pain [Unknown]
  - Gastrointestinal disorder [Unknown]
  - Cardiac disorder [Unknown]
  - Dyspnoea [Unknown]
  - Overdose [Unknown]

NARRATIVE: CASE EVENT DATE: 20170502
